FAERS Safety Report 8560802 (Version 2)
Quarter: 2012Q4

REPORT INFORMATION
  Report Type: 
  Country: FR (occurrence: FR)
  Receive Date: 20120514
  Receipt Date: 20120919
  Transmission Date: 20130627
  Serious: Yes (Other)
  Sender: FDA-Public Use
  Company Number: FR-ABBOTT-12P-056-0932998-00

PATIENT
  Age: 68 Year
  Sex: Female

DRUGS (4)
  1. ZECLAR [Suspect]
     Indication: MYCOBACTERIAL INFECTION
     Route: 048
     Dates: start: 20120314, end: 20120418
  2. ZECLAR [Suspect]
     Indication: ATYPICAL MYCOBACTERIAL INFECTION
  3. MOXIFLOXACIN HYDROCHLORIDE [Suspect]
     Indication: MYCOBACTERIAL INFECTION
     Dates: start: 20120314, end: 20120418
  4. AMIKACIN [Concomitant]
     Indication: MYCOBACTERIAL INFECTION
     Route: 042
     Dates: start: 20120314, end: 20120328

REACTIONS (3)
  - Mixed liver injury [Recovered/Resolved]
  - Dysgeusia [Unknown]
  - Laboratory test abnormal [Unknown]
